FAERS Safety Report 14794672 (Version 1)
Quarter: 2018Q2

REPORT INFORMATION
  Report Type: Spontaneous
  Country: FR (occurrence: FR)
  Receive Date: 20180423
  Receipt Date: 20180423
  Transmission Date: 20180711
  Serious: Yes (Other)
  Sender: FDA-Public Use
  Company Number: FR-PFIZER INC-2018158615

PATIENT
  Age: 28 Year
  Sex: Male

DRUGS (4)
  1. XANAX [Suspect]
     Active Substance: ALPRAZOLAM
     Dosage: 1 MG, 1X/DAY
     Route: 048
  2. LOXAPAC [Suspect]
     Active Substance: LOXAPINE
     Dosage: UNK
     Route: 048
  3. ARIPIPRAZOLE. [Suspect]
     Active Substance: ARIPIPRAZOLE
     Indication: SCHIZOAFFECTIVE DISORDER
     Dosage: 30 MG, 1X/DAY
     Route: 048
     Dates: start: 2007
  4. TERALITHE [Suspect]
     Active Substance: LITHIUM CARBONATE
     Indication: SCHIZOAFFECTIVE DISORDER
     Dosage: 1200 MG, 1X/DAY
     Route: 048
     Dates: start: 2007

REACTIONS (1)
  - Gambling disorder [Recovering/Resolving]

NARRATIVE: CASE EVENT DATE: 2007
